FAERS Safety Report 7554036-2 (Version None)
Quarter: 2011Q2

REPORT INFORMATION
  Report Type: 
  Country: None (occurrence: None)
  Receive Date: 20110614
  Receipt Date: 20110614
  Transmission Date: 20111010
  Serious: No
  Sender: FDA-Public Use
  Company Number: None

PATIENT
  Age: 28 Year
  Sex: Male
  Weight: 90.7194 kg

DRUGS (1)
  1. DIVALPROEX SODIUM [Suspect]
     Dosage: 2000MG DAILY PO
     Route: 048

REACTIONS (1)
  - PANCREATITIS [None]
